FAERS Safety Report 15501261 (Version 3)
Quarter: 2018Q4

REPORT INFORMATION
  Report Type: Report from Study
  Country: US (occurrence: US)
  Receive Date: 20181015
  Receipt Date: 20181221
  Transmission Date: 20190205
  Serious: Yes (Hospitalization, Other)
  Sender: FDA-Public Use
  Company Number: US-ACTELION-A-US2018-171209

PATIENT
  Age: 67 Year
  Sex: Female

DRUGS (12)
  1. UPTRAVI [Suspect]
     Active Substance: SELEXIPAG
     Dosage: UNK
     Route: 048
     Dates: start: 20180109
  2. AZITHROMYCIN ANHYDROUS. [Concomitant]
     Active Substance: AZITHROMYCIN ANHYDROUS
  3. UPTRAVI [Suspect]
     Active Substance: SELEXIPAG
     Dosage: 1400 MCG, BID
     Route: 048
  4. ALBUTEROL. [Concomitant]
     Active Substance: ALBUTEROL
  5. UPTRAVI [Suspect]
     Active Substance: SELEXIPAG
     Dosage: 1200 MCG, BID
     Route: 048
  6. POTASSIUM CHLORIDE. [Concomitant]
     Active Substance: POTASSIUM CHLORIDE
  7. DEXAMETHASONE. [Concomitant]
     Active Substance: DEXAMETHASONE
  8. UPTRAVI [Suspect]
     Active Substance: SELEXIPAG
     Dosage: 1000 MCG, BID
     Route: 048
  9. LYRICA [Concomitant]
     Active Substance: PREGABALIN
  10. BENZONATATE. [Concomitant]
     Active Substance: BENZONATATE
  11. UPTRAVI [Suspect]
     Active Substance: SELEXIPAG
     Indication: PULMONARY ARTERIAL HYPERTENSION
     Dosage: 800 MG, BID
     Route: 048
     Dates: start: 20180109
  12. UPTRAVI [Suspect]
     Active Substance: SELEXIPAG
     Dosage: 1200 MCG, QD
     Route: 048
     Dates: start: 20180612

REACTIONS (21)
  - Pain in jaw [Recovered/Resolved]
  - Weight decreased [Unknown]
  - Pain [Unknown]
  - Musculoskeletal pain [Unknown]
  - Cough [Unknown]
  - Peripheral swelling [Unknown]
  - Fall [Unknown]
  - Neck pain [Unknown]
  - Alcohol withdrawal syndrome [Unknown]
  - Tremor [Unknown]
  - Asthenia [Unknown]
  - Dizziness [Unknown]
  - Dysuria [Unknown]
  - Nasopharyngitis [Unknown]
  - Headache [Unknown]
  - Depression [Unknown]
  - Dyspnoea [Unknown]
  - Diarrhoea [Unknown]
  - Fatigue [Unknown]
  - Dehydration [Unknown]
  - Productive cough [Unknown]

NARRATIVE: CASE EVENT DATE: 201802
